FAERS Safety Report 20869782 (Version 1)
Quarter: 2022Q2

REPORT INFORMATION
  Report Type: Spontaneous
  Country: BR (occurrence: None)
  Receive Date: 20220525
  Receipt Date: 20220525
  Transmission Date: 20220721
  Serious: Yes (Other)
  Sender: FDA-Public Use
  Company Number: BR-ROCHE-3092942

PATIENT
  Age: 71 Year
  Sex: Female
  Weight: 526 kg

DRUGS (1)
  1. MABTHERA [Suspect]
     Active Substance: RITUXIMAB
     Indication: B-cell lymphoma
     Route: 065
     Dates: start: 20200921, end: 20200921

REACTIONS (4)
  - Malaise [Recovered/Resolved]
  - Hyperhidrosis [Unknown]
  - Hypotension [Unknown]
  - Bradycardia [Unknown]

NARRATIVE: CASE EVENT DATE: 20200921
